FAERS Safety Report 18106144 (Version 16)
Quarter: 2023Q2

REPORT INFORMATION
  Report Type: Report from Study
  Country: DE (occurrence: DE)
  Receive Date: 20200803
  Receipt Date: 20230606
  Transmission Date: 20230721
  Serious: Yes (Other)
  Sender: FDA-Public Use
  Company Number: DE-002147023-NVSC2019DE077269

PATIENT
  Sex: Female
  Weight: 91 kg

DRUGS (12)
  1. ANASTROZOLE [Suspect]
     Active Substance: ANASTROZOLE
     Indication: Breast cancer metastatic
     Dosage: 600MG,QD(SCHEMA 21 DAYS INTAKE, 7 DAYS PAUSE)
     Route: 048
     Dates: start: 20191201, end: 20191219
  2. ANASTROZOLE [Suspect]
     Active Substance: ANASTROZOLE
     Dosage: 1MG,QD (IN COMBO WITH RIBOCICLIB) (LD 21-APR-2020)
     Route: 048
     Dates: start: 20191201, end: 20200421
  3. ANASTROZOLE [Suspect]
     Active Substance: ANASTROZOLE
     Dosage: SCHEMA 21DAYS INTAKE, 7DAYS PAUSE 07-JAN-2020
     Route: 048
     Dates: end: 20200224
  4. ANASTROZOLE [Suspect]
     Active Substance: ANASTROZOLE
     Dosage: (SCHEMA 21 DAYS INTAKE, 7 DAYS PAUSE
     Route: 048
     Dates: end: 20200421
  5. KISQALI [Suspect]
     Active Substance: RIBOCICLIB
     Indication: Breast cancer metastatic
     Dosage: 600MG, QD (SCHEMA 21 DAYS INTAKE, 7 DAYS PAUSE)
     Route: 048
     Dates: start: 20191201, end: 20191219
  6. KISQALI [Suspect]
     Active Substance: RIBOCICLIB
     Dosage: 400 MG, QD (SCHEMA 21 DAYS INTAKE, 7 DAYS PAUSE)
     Route: 048
     Dates: start: 20200107, end: 20200224
  7. KISQALI [Suspect]
     Active Substance: RIBOCICLIB
     Dosage: 200 MG, QD (SCHEMA 21 DAYS INTAKE, 7 DAYS PAUSE)
     Route: 048
     Dates: start: 20200225, end: 20200421
  8. KISQALI [Suspect]
     Active Substance: RIBOCICLIB
     Dosage: 600MG,QD(SCHEMA 21 DAYS INTAKE, 7 DAYS PAUSE)
     Route: 048
  9. KISQALI [Suspect]
     Active Substance: RIBOCICLIB
     Dosage: 1 MILLIGRAM,QD(DAILY DOSE)
     Route: 048
     Dates: start: 20200422
  10. IBANDRONATE SODIUM [Suspect]
     Active Substance: IBANDRONATE SODIUM
     Indication: Product used for unknown indication
     Dosage: UNK
     Route: 065
  11. PALBOCICLIB [Concomitant]
     Active Substance: PALBOCICLIB
     Indication: Breast cancer metastatic
     Dosage: 75 MILLIGRAM
     Route: 065
  12. PALBOCICLIB [Concomitant]
     Active Substance: PALBOCICLIB
     Dosage: 75 MG(SCHEMA 21 DAYS INTAKE, 7 DAYS PAUSE)
     Route: 048
     Dates: start: 20201215

REACTIONS (5)
  - Neutropenia [Recovered/Resolved]
  - Thrombocytopenia [Recovered/Resolved]
  - White blood cell count decreased [Unknown]
  - Leukopenia [Not Recovered/Not Resolved]
  - Syringe issue [Unknown]

NARRATIVE: CASE EVENT DATE: 20191217
